FAERS Safety Report 6349531-8 (Version None)
Quarter: 2009Q3

REPORT INFORMATION
  Report Type: 
  Country: None (occurrence: None)
  Receive Date: 20090911
  Receipt Date: 20090903
  Transmission Date: 20100115
  Serious: Yes (Other)
  Sender: FDA-Public Use
  Company Number: US-PFIZER INC-2008074667

PATIENT
  Sex: Male
  Weight: 96.145 kg

DRUGS (11)
  1. LIPITOR [Suspect]
     Indication: BLOOD CHOLESTEROL INCREASED
  2. LIPITOR [Suspect]
  3. CADUET [Suspect]
  4. XANAX [Suspect]
  5. ATENOLOL [Concomitant]
     Indication: HYPERTENSION
  6. AVAPRO [Concomitant]
  7. METFORMIN [Concomitant]
     Indication: DIABETES MELLITUS
  8. AMARYL [Concomitant]
  9. SPIRONOLACTONE [Concomitant]
  10. ACETYLSALICYLIC ACID [Concomitant]
  11. WARFARIN [Concomitant]

REACTIONS (10)
  - ATRIOVENTRICULAR BLOCK [None]
  - CHEST DISCOMFORT [None]
  - CORONARY ARTERY BYPASS [None]
  - DIABETES MELLITUS [None]
  - FATIGUE [None]
  - LIMB DISCOMFORT [None]
  - OBESITY [None]
  - POSTOPERATIVE THORACIC PROCEDURE COMPLICATION [None]
  - SOMNOLENCE [None]
  - STRESS [None]
